FAERS Safety Report 18451368 (Version 1)
Quarter: 2020Q4

REPORT INFORMATION
  Report Type: Spontaneous
  Country: IN (occurrence: IN)
  Receive Date: 20201102
  Receipt Date: 20201102
  Transmission Date: 20210114
  Serious: Yes (Other)
  Sender: FDA-Public Use
  Company Number: IN-SUN PHARMACEUTICAL INDUSTRIES LTD-2020R1-265893

PATIENT
  Age: 16 Year
  Sex: Female
  Weight: 72.8 kg

DRUGS (1)
  1. VALPROIC ACID. [Suspect]
     Active Substance: VALPROIC ACID
     Indication: EPILEPSY
     Dosage: 1000 MILLIGRAM, DAILY
     Route: 065

REACTIONS (3)
  - Blood luteinising hormone increased [Unknown]
  - Blood thyroid stimulating hormone increased [Recovered/Resolved]
  - Ovarian cyst [Recovered/Resolved]
